FAERS Safety Report 4636262-5 (Version None)
Quarter: 2005Q2

REPORT INFORMATION
  Report Type: 
  Country: None (occurrence: None)
  Receive Date: 20050413
  Receipt Date: 20050413
  Transmission Date: 20051028
  Serious: No
  Sender: FDA-Public Use
  Company Number: None

PATIENT
  Sex: Male
  Weight: 82.1011 kg

DRUGS (2)
  1. LISINOPRIL [Suspect]
     Indication: DIABETES MELLITUS
     Dosage: 10MG  QD   ORAL
     Route: 048
     Dates: start: 20031001, end: 20041123
  2. LISINOPRIL [Suspect]
     Indication: HYPERTENSION
     Dosage: 10MG  QD   ORAL
     Route: 048
     Dates: start: 20031001, end: 20041123

REACTIONS (7)
  - ANGIONEUROTIC OEDEMA [None]
  - ARTHRALGIA [None]
  - DYSPHAGIA [None]
  - ERYTHEMA [None]
  - OROPHARYNGEAL SWELLING [None]
  - PAIN [None]
  - URINE OUTPUT DECREASED [None]
